FAERS Safety Report 5611432-8 (Version None)
Quarter: 2008Q1

REPORT INFORMATION
  Report Type: 
  Country: None (occurrence: None)
  Receive Date: 20080201
  Receipt Date: 20080123
  Transmission Date: 20080703
  Serious: Yes (Hospitalization)
  Sender: FDA-Public Use
  Company Number: US-ELI_LILLY_AND_COMPANY-US200801004846

PATIENT
  Sex: Female
  Weight: 90.703 kg

DRUGS (9)
  1. BYETTA [Suspect]
     Dosage: 5 UG, 2/D
     Route: 058
     Dates: start: 20070101, end: 20071101
  2. BYETTA [Suspect]
     Dosage: 5 UG, 2/D
     Route: 058
     Dates: start: 20070101, end: 20071201
  3. BYETTA [Suspect]
     Dosage: 10 UG, 2/D
     Route: 058
     Dates: start: 20071201
  4. PLAVIX [Concomitant]
     Indication: PROPHYLAXIS
  5. ALTACE [Concomitant]
     Indication: HYPERTENSION
  6. VYTORIN [Concomitant]
  7. BONIVA [Concomitant]
     Indication: BONE DISORDER
  8. CITRUCEL [Concomitant]
  9. VITAMIN E [Concomitant]

REACTIONS (8)
  - BLOOD GLUCOSE INCREASED [None]
  - CONFUSIONAL STATE [None]
  - FEELING ABNORMAL [None]
  - HIP ARTHROPLASTY [None]
  - KIDNEY INFECTION [None]
  - PARAESTHESIA [None]
  - SINUSITIS [None]
  - WEIGHT DECREASED [None]
